FAERS Safety Report 9801953 (Version 3)
Quarter: 2014Q1

REPORT INFORMATION
  Report Type: Report from Study
  Country: IT (occurrence: IT)
  Receive Date: 20140107
  Receipt Date: 20140117
  Transmission Date: 20141002
  Serious: Yes (Death, Hospitalization)
  Sender: FDA-Public Use
  Company Number: IT-CELGENEUS-083-C4047-13123942

PATIENT
  Age: 66 Year
  Sex: Female
  Weight: 67 kg

DRUGS (28)
  1. CC-4047 [Suspect]
     Indication: PLASMA CELL MYELOMA
     Dosage: 4 MILLIGRAM
     Route: 048
     Dates: start: 20131209, end: 20131218
  2. DEXAMETHASONE [Suspect]
     Indication: PLASMA CELL MYELOMA
     Dosage: 40 MILLIGRAM
     Route: 048
     Dates: start: 20131209, end: 20131216
  3. PLATELETS [Concomitant]
     Indication: PLATELET TRANSFUSION
     Route: 041
     Dates: start: 20131209, end: 20131209
  4. PLATELETS [Concomitant]
     Route: 041
     Dates: start: 20131213, end: 20131213
  5. PLATELETS [Concomitant]
     Route: 041
     Dates: start: 20131216, end: 20131216
  6. RED BLOOD CELLS [Concomitant]
     Indication: HAEMOGLOBIN DECREASED
     Route: 041
     Dates: start: 20131209, end: 20131209
  7. RED BLOOD CELLS [Concomitant]
     Route: 041
     Dates: start: 20131216, end: 20131216
  8. LYRICA [Concomitant]
     Indication: NEURALGIA
     Dosage: 100 MILLIGRAM
     Route: 048
     Dates: start: 20131111, end: 20131218
  9. LASIX [Concomitant]
     Indication: HYPERTENSION
     Dosage: 25 MILLIGRAM
     Route: 048
     Dates: start: 20130909, end: 20131208
  10. LASIX [Concomitant]
     Indication: RENAL FAILURE
     Dosage: 25 MILLIGRAM
     Route: 048
     Dates: start: 20131209, end: 20131218
  11. LASIX [Concomitant]
     Indication: PULMONARY OEDEMA
     Dosage: 2 VIALS
     Route: 041
     Dates: start: 20131218, end: 20131218
  12. LASIX [Concomitant]
     Dosage: 1 VIALS
     Route: 041
     Dates: start: 20131219, end: 20131219
  13. LASIX [Concomitant]
     Dosage: 1 VIALS
     Route: 041
     Dates: start: 20131222, end: 20131222
  14. LASIX [Concomitant]
     Dosage: 2 VIALS
     Route: 041
     Dates: start: 20131230
  15. LOSEC [Concomitant]
     Indication: PROPHYLAXIS AGAINST GASTROINTESTINAL ULCER
     Dosage: 20 MILLIGRAM
     Route: 048
     Dates: start: 20030318
  16. ACICLOVIR [Concomitant]
     Indication: INFECTION PROPHYLAXIS
     Dosage: 800 MILLIGRAM
     Route: 048
     Dates: start: 20120614, end: 20131218
  17. NEBIVOLOL [Concomitant]
     Indication: PROPHYLAXIS
     Route: 048
     Dates: start: 20120210
  18. KCL RETARD [Concomitant]
     Indication: MINERAL SUPPLEMENTATION
     Dosage: 1 TABLET
     Route: 048
     Dates: start: 20131111, end: 20131209
  19. FOLINA [Concomitant]
     Indication: VITAMIN SUPPLEMENTATION
     Dosage: 5 MILLIGRAM
     Route: 048
     Dates: start: 20130705, end: 20131218
  20. SPIRONOLACTONE [Concomitant]
     Indication: HYPERTENSION
     Dosage: 100 MILLIGRAM
     Route: 048
     Dates: start: 20131202, end: 20131218
  21. ALLOPURINOL [Concomitant]
     Indication: PROPHYLAXIS
     Dosage: 100 MILLIGRAM
     Route: 048
     Dates: start: 20130705
  22. TACHIDOL [Concomitant]
     Indication: PAIN PROPHYLAXIS
     Dosage: 1 DOSAGE FORMS
     Route: 048
     Dates: start: 20131111, end: 20131229
  23. TACHIDOL [Concomitant]
     Dosage: 1 DOSAGE FORMS
     Route: 048
     Dates: start: 20131111, end: 20131229
  24. TACHIDOL [Concomitant]
     Dosage: 1 DOSAGE FORMS
     Route: 048
     Dates: start: 20131111, end: 20131229
  25. ARANESP [Concomitant]
     Indication: ANAEMIA PROPHYLAXIS
     Dosage: 500 MICROGRAM
     Route: 048
     Dates: start: 20130614, end: 20131218
  26. MAG 2 [Concomitant]
     Indication: MINERAL SUPPLEMENTATION
     Dosage: 1 DOSAGE FORMS
     Route: 048
     Dates: start: 20131111
  27. CEFTRIAXONE [Concomitant]
     Indication: PYREXIA
     Dosage: 2 GRAM
     Route: 041
     Dates: start: 20131216, end: 20131219
  28. CEFTRIAXONE [Concomitant]
     Indication: INFECTION
     Dosage: 2 GRAM
     Route: 041
     Dates: start: 20131218, end: 20131219

REACTIONS (3)
  - Pulmonary oedema [Not Recovered/Not Resolved]
  - Plasma cell leukaemia [Fatal]
  - Renal failure [Not Recovered/Not Resolved]
